FAERS Safety Report 5130350-5 (Version None)
Quarter: 2006Q4

REPORT INFORMATION
  Report Type: 
  Country: None (occurrence: None)
  Receive Date: 20061013
  Receipt Date: 20060928
  Transmission Date: 20070319
  Serious: Yes (Hospitalization)
  Sender: FDA-Public Use
  Company Number: US200608004300

PATIENT
  Age: 45 Year
  Sex: Female
  Weight: 88.4 kg

DRUGS (2)
  1. ZYPREXA [Suspect]
     Dosage: 5 MG
     Dates: start: 20010901, end: 20060201
  2. PAROXETINE HCL [Concomitant]

REACTIONS (6)
  - BLOOD CHOLESTEROL INCREASED [None]
  - BLOOD TRIGLYCERIDES INCREASED [None]
  - DIABETES MELLITUS [None]
  - HYPERTENSION [None]
  - METABOLIC DISORDER [None]
  - MYOCARDIAL INFARCTION [None]
